FAERS Safety Report 23286452 (Version 1)
Quarter: 2023Q4

REPORT INFORMATION
  Report Type: Spontaneous
  Country: CN (occurrence: CN)
  Receive Date: 20231212
  Receipt Date: 20231212
  Transmission Date: 20240109
  Serious: Yes (Life-Threatening, Hospitalization, Other)
  Sender: FDA-Public Use
  Company Number: CN-PFIZER INC-PV202300196824

PATIENT
  Age: 44 Month
  Sex: Male

DRUGS (2)
  1. AZITHROMYCIN [Suspect]
     Active Substance: AZITHROMYCIN
     Indication: Pneumonia mycoplasmal
     Dosage: 0.15, 1X/DAY
     Route: 048
  2. CEFTIZOXIME [Suspect]
     Active Substance: CEFTIZOXIME
     Indication: Pneumonia mycoplasmal
     Dosage: 0.75Q, 2X/DAY (EVERY 12 HRS)
     Route: 042

REACTIONS (1)
  - Drug ineffective [Unknown]
